FAERS Safety Report 9599078 (Version 1)
Quarter: 2013Q4

REPORT INFORMATION
  Report Type: Spontaneous
  Country: US (occurrence: US)
  Receive Date: 20131004
  Receipt Date: 20131004
  Transmission Date: 20140711
  Serious: No
  Sender: FDA-Public Use
  Company Number: US-AMGEN-USASP2013027705

PATIENT
  Age: 61 Year
  Sex: Female
  Weight: 58.96 kg

DRUGS (5)
  1. ENBREL [Suspect]
     Indication: PRODUCT USED FOR UNKNOWN INDICATION
     Dosage: 50 MG, QWK
  2. VITAMIN D                          /00107901/ [Concomitant]
     Dosage: 400 UNIT, UNK
     Route: 048
  3. FISH OIL [Concomitant]
     Dosage: UNK
     Route: 048
  4. VITAMIN B12                        /00056201/ [Concomitant]
     Dosage: 500 MUG, UNK
     Route: 048
  5. CALCIUM +VIT D [Concomitant]
     Dosage: UNK
     Route: 048

REACTIONS (1)
  - Arthralgia [Unknown]
